FAERS Safety Report 5778582-7 (Version None)
Quarter: 2008Q2

REPORT INFORMATION
  Report Type: 
  Country: None (occurrence: None)
  Receive Date: 20080619
  Receipt Date: 20080611
  Transmission Date: 20081010
  Serious: Yes (Hospitalization)
  Sender: FDA-Public Use
  Company Number: PT-AMGEN-UK259813

PATIENT
  Sex: Female
  Weight: 90 kg

DRUGS (5)
  1. NEULASTA [Suspect]
     Indication: CHEMOTHERAPY
     Route: 058
     Dates: start: 20070920
  2. NEUPOGEN [Suspect]
     Indication: CHEMOTHERAPY
     Route: 058
     Dates: start: 20071206, end: 20071210
  3. TAXOTERE [Concomitant]
     Dates: start: 20070919
  4. DOXORUBICIN HYDROCHLORIDE [Concomitant]
     Dates: start: 20070919
  5. CYCLOPHOSPHAMIDE [Concomitant]
     Dates: start: 20070919

REACTIONS (1)
  - DRUG INEFFECTIVE [None]
